FAERS Safety Report 8127248-7 (Version None)
Quarter: 2011Q4

REPORT INFORMATION
  Report Type: 
  Country: None (occurrence: None)
  Receive Date: 20111227
  Receipt Date: 20110829
  Transmission Date: 20120403
  Serious: No
  Sender: FDA-Public Use
  Company Number: PHHY2011US27672

PATIENT
  Age: 47 Year
  Sex: Female
  Weight: 45.4 kg

DRUGS (2)
  1. GILENYA [Suspect]
     Indication: MULTIPLE SCLEROSIS
     Dosage: 0.5 MG, UNK, ORAL 2 DF, UNK, ORAL
     Route: 048
     Dates: start: 20110308
  2. GILENYA [Suspect]
     Indication: MULTIPLE SCLEROSIS
     Dosage: 0.5 MG, UNK, ORAL 2 DF, UNK, ORAL
     Route: 048
     Dates: start: 20110401

REACTIONS (3)
  - DECREASED APPETITE [None]
  - WEIGHT DECREASED [None]
  - OVERDOSE [None]
